FAERS Safety Report 5842943-8 (Version None)
Quarter: 2008Q3

REPORT INFORMATION
  Report Type: 
  Country: None (occurrence: None)
  Receive Date: 20080813
  Receipt Date: 20080730
  Transmission Date: 20090109
  Serious: Yes (Other)
  Sender: FDA-Public Use
  Company Number: US-JNJFOC-20080800352

PATIENT
  Sex: Male
  Weight: 86.18 kg

DRUGS (1)
  1. LEVAQUIN [Suspect]
     Indication: EAR INFECTION
     Route: 048
     Dates: start: 20080720

REACTIONS (3)
  - DIZZINESS [None]
  - EAR INFECTION [None]
  - NAUSEA [None]
